FAERS Safety Report 16246065 (Version 19)
Quarter: 2020Q1

REPORT INFORMATION
  Report Type: Report from Study
  Country: US (occurrence: US)
  Receive Date: 20190426
  Receipt Date: 20200312
  Transmission Date: 20200409
  Serious: Yes (Hospitalization)
  Sender: FDA-Public Use
  Company Number: US-ACTELION-A-US2018-181547

PATIENT
  Age: 56 Year
  Sex: Female
  Weight: 104.31 kg

DRUGS (11)
  1. VELETRI [Suspect]
     Active Substance: EPOPROSTENOL
     Dosage: 24 NG/KG, PER MIN
     Route: 042
  2. ORENITRAM [Suspect]
     Active Substance: TREPROSTINIL
     Indication: PRODUCT USED FOR UNKNOWN INDICATION
     Dosage: 11.5 MG, TID
     Route: 048
  3. ADEMPAS [Concomitant]
     Active Substance: RIOCIGUAT
  4. OXYGEN. [Concomitant]
     Active Substance: OXYGEN
     Route: 045
  5. ORENITRAM [Suspect]
     Active Substance: TREPROSTINIL
     Dosage: 11 MG, TID
     Route: 065
  6. VELETRI [Suspect]
     Active Substance: EPOPROSTENOL
     Dosage: 30 NG/KG, PER MIN
     Route: 042
  7. VELETRI [Suspect]
     Active Substance: EPOPROSTENOL
     Dosage: 20 NG/KG, PER MIN
     Route: 042
  8. VELETRI [Suspect]
     Active Substance: EPOPROSTENOL
     Indication: PULMONARY ARTERIAL HYPERTENSION
     Dosage: 30 NG/KG, PER MIN
     Route: 042
  9. VELETRI [Suspect]
     Active Substance: EPOPROSTENOL
     Dosage: 22 NG/KG, PER MIN
     Route: 042
  10. OPSUMIT [Suspect]
     Active Substance: MACITENTAN
     Indication: PULMONARY ARTERIAL HYPERTENSION
     Dosage: 10 MG, QD
     Route: 048
     Dates: start: 20180629
  11. DILTIAZEM. [Concomitant]
     Active Substance: DILTIAZEM

REACTIONS (52)
  - Eye pain [Not Recovered/Not Resolved]
  - Catheter site erythema [Unknown]
  - Palpitations [Not Recovered/Not Resolved]
  - Cough [Unknown]
  - Fluid retention [Unknown]
  - Oropharyngeal pain [Unknown]
  - Catheter site pain [Unknown]
  - Throat irritation [Unknown]
  - Pain in extremity [Not Recovered/Not Resolved]
  - Catheter site pruritus [Unknown]
  - Schizophrenia [Unknown]
  - Tonsillar inflammation [Unknown]
  - Anxiety [Not Recovered/Not Resolved]
  - Nasal dryness [Unknown]
  - Pulmonary arterial hypertension [Unknown]
  - Abdominal pain upper [Unknown]
  - Device occlusion [Unknown]
  - Back pain [Unknown]
  - Dyspnoea exertional [Not Recovered/Not Resolved]
  - Myalgia [Unknown]
  - Oedema [Not Recovered/Not Resolved]
  - Dyspnoea [Recovering/Resolving]
  - Respiratory tract congestion [Unknown]
  - Catheter placement [Unknown]
  - Malaise [Unknown]
  - Nasal congestion [Unknown]
  - Sputum discoloured [Unknown]
  - Crepitations [Unknown]
  - Rhinorrhoea [Unknown]
  - Catheter site discharge [Unknown]
  - Device dislocation [Unknown]
  - Oxygen saturation decreased [Unknown]
  - Nausea [Unknown]
  - Pharyngitis [Unknown]
  - Sensation of foreign body [Unknown]
  - Device leakage [Unknown]
  - Fatigue [Unknown]
  - Peripheral swelling [Unknown]
  - Epistaxis [Unknown]
  - Hypoaesthesia [Unknown]
  - Bronchitis [Recovering/Resolving]
  - Headache [Unknown]
  - Wheezing [Unknown]
  - Sinus congestion [Unknown]
  - Pruritus [Not Recovered/Not Resolved]
  - Pain in jaw [Not Recovered/Not Resolved]
  - Arthralgia [Not Recovered/Not Resolved]
  - Lower respiratory tract infection [Unknown]
  - Abdominal distension [Unknown]
  - Contusion [Unknown]
  - Weight increased [Not Recovered/Not Resolved]
  - Flushing [Not Recovered/Not Resolved]

NARRATIVE: CASE EVENT DATE: 20190419
